FAERS Safety Report 19062088 (Version 1)
Quarter: 2021Q1

REPORT INFORMATION
  Report Type: Spontaneous
  Country: US (occurrence: US)
  Receive Date: 20210325
  Receipt Date: 20210325
  Transmission Date: 20210420
  Serious: Yes (Hospitalization)
  Sender: FDA-Public Use
  Company Number: None

PATIENT
  Age: 60 Year
  Sex: Female
  Weight: 128.25 kg

DRUGS (10)
  1. WELLBUTRIN [Concomitant]
     Active Substance: BUPROPION HYDROCHLORIDE
  2. ACIPHEX [Concomitant]
     Active Substance: RABEPRAZOLE SODIUM
  3. TOPRIL [Concomitant]
  4. MOTRIN [Concomitant]
     Active Substance: IBUPROFEN
  5. MACROBID [Suspect]
     Active Substance: NITROFURANTOIN\NITROFURANTOIN MONOHYDRATE
     Indication: URINARY TRACT INFECTION
     Route: 048
     Dates: start: 20210323, end: 20210324
  6. LEVOXYL [Concomitant]
     Active Substance: LEVOTHYROXINE SODIUM
  7. ZOLOFT [Concomitant]
     Active Substance: SERTRALINE HYDROCHLORIDE
  8. INHALER [Concomitant]
     Active Substance: UNSPECIFIED INGREDIENT
  9. MUSINEX [Concomitant]
  10. BUSPAR [Concomitant]
     Active Substance: BUSPIRONE HYDROCHLORIDE

REACTIONS (9)
  - Dizziness [None]
  - Diarrhoea [None]
  - Vomiting [None]
  - Blood pressure increased [None]
  - Pyrexia [None]
  - Paraesthesia [None]
  - Pain [None]
  - Chills [None]
  - Headache [None]

NARRATIVE: CASE EVENT DATE: 20210324
